FAERS Safety Report 10727144 (Version 2)
Quarter: 2015Q1

REPORT INFORMATION
  Report Type: Report from Study
  Country: US (occurrence: US)
  Receive Date: 20150121
  Receipt Date: 20150312
  Transmission Date: 20150721
  Serious: Yes (Hospitalization, Other)
  Sender: FDA-Public Use
  Company Number: US-SA-2015SA004630

PATIENT
  Age: 61 Year
  Sex: Female

DRUGS (1)
  1. AUBAGIO [Suspect]
     Active Substance: TERIFLUNOMIDE
     Indication: MULTIPLE SCLEROSIS
     Route: 048
     Dates: start: 20141116

REACTIONS (7)
  - Barrett^s oesophagus [Unknown]
  - Hyperhidrosis [Not Recovered/Not Resolved]
  - Oesophageal ulcer [Unknown]
  - Ovarian neoplasm [Unknown]
  - Gastrooesophageal reflux disease [Unknown]
  - Flank pain [Unknown]
  - Pancreatitis [Unknown]

NARRATIVE: CASE EVENT DATE: 201501
